FAERS Safety Report 5819245-9 (Version None)
Quarter: 2008Q3

REPORT INFORMATION
  Report Type: 
  Country: None (occurrence: None)
  Receive Date: 20080723
  Receipt Date: 20080318
  Transmission Date: 20090109
  Serious: Yes (Hospitalization, Disabling)
  Sender: FDA-Public Use
  Company Number: AR-ROCHE-523021

PATIENT
  Sex: Female
  Weight: 48 kg

DRUGS (53)
  1. MYCOPHENOLATE MOFETIL [Suspect]
     Indication: LUPUS NEPHRITIS
     Route: 048
     Dates: start: 20060822, end: 20070204
  2. MYCOPHENOLATE MOFETIL [Suspect]
     Indication: LUPUS NEPHRITIS
     Dosage: DOSE REDUCED FROM ^2G^ TO ^1.5G^ ON 17 APR 2007. THERAPY PERMANENTLY DISCONTINUED ON 02 OCT 2007.
     Route: 048
     Dates: start: 20070205, end: 20071002
  3. BLINDED AZATHIOPRINE [Suspect]
     Indication: LUPUS NEPHRITIS
     Dosage: DOSE REPORTED AS 150MG.
     Route: 048
     Dates: start: 20070205, end: 20070416
  4. BLINDED AZATHIOPRINE [Suspect]
     Dosage: DOSE REPORTED AS 100MG. THERAPY PERMANENTLY DISCONTINUED ON 02 OCTOBER 2007.
     Route: 048
     Dates: start: 20070417, end: 20071002
  5. CYCLOPHOSPHAMIDE [Suspect]
     Indication: LUPUS NEPHRITIS
     Route: 042
     Dates: start: 20071008, end: 20071008
  6. CYCLOPHOSPHAMIDE [Suspect]
     Route: 042
     Dates: start: 20071221
  7. METHYLPREDNISOLONE [Suspect]
     Indication: LUPUS NEPHRITIS
     Route: 048
     Dates: start: 20061114, end: 20071001
  8. METHYLPREDNISOLONE [Suspect]
     Route: 048
     Dates: start: 20071008, end: 20080117
  9. METHYLPREDNISOLONE [Suspect]
     Route: 048
     Dates: start: 20080118
  10. METHYLPREDNISOLONE [Suspect]
     Route: 042
     Dates: start: 20071002, end: 20071002
  11. METHYLPREDNISOLONE [Suspect]
     Route: 042
     Dates: start: 20071003, end: 20071007
  12. CALCIUM CARBONATE [Concomitant]
     Dosage: DRUG REPORTED AS CALCIUM BICARBONATE
     Dates: start: 20060622, end: 20071001
  13. LOSARTAN POTASSIUM [Concomitant]
     Route: 048
     Dates: start: 20060808, end: 20071003
  14. LOSARTAN POTASSIUM [Concomitant]
     Dosage: INDICATION: RENAL FAILURE ATTRIBUTABLE TO LUPUS NEPHRITIS FLARE.
     Route: 048
     Dates: start: 20071004, end: 20071023
  15. FUROSEMIDE [Concomitant]
     Dosage: INDICATION: EDEMA
     Route: 048
     Dates: start: 20060808, end: 20060821
  16. FUROSEMIDE [Concomitant]
     Route: 048
     Dates: start: 20060822
  17. FUROSEMIDE [Concomitant]
     Route: 048
     Dates: start: 20070604, end: 20071001
  18. FUROSEMIDE [Concomitant]
     Route: 048
     Dates: start: 20071002, end: 20071002
  19. FUROSEMIDE [Concomitant]
     Route: 048
     Dates: start: 20071003, end: 20071003
  20. FUROSEMIDE [Concomitant]
     Dosage: INDICATION: RENAL FAILURE ATTRIBUTABLE TO LUPUS NEPHRITIS FLARE.
     Route: 048
     Dates: start: 20071009
  21. FUROSEMIDE [Concomitant]
     Dosage: INDICATION: RENAL FAILURE ATTRIBUTABLE TO LUPUS NEPHRITIS FLARE.
     Route: 042
     Dates: start: 20071002, end: 20071002
  22. FUROSEMIDE [Concomitant]
     Dosage: INDICATION: RENAL FAILURE ATTRIBUTABLE TO LUPUS NEPHRITIS FLARE.
     Route: 042
     Dates: start: 20071004, end: 20071004
  23. FUROSEMIDE [Concomitant]
     Dosage: INDICATION: RENAL FAILURE ATTRIBUTABLE TO LUPUS NEPHRITIS FLARE.
     Route: 042
     Dates: start: 20071005, end: 20071008
  24. FUROSEMIDE [Concomitant]
     Route: 042
     Dates: start: 20071015
  25. SUCRALFATE [Concomitant]
     Dates: start: 20070305, end: 20071001
  26. OMEPRAZOLE [Concomitant]
     Indication: GASTRITIS
     Route: 048
     Dates: start: 20070411
  27. OMEPRAZOLE [Concomitant]
     Route: 048
     Dates: start: 20071009
  28. OMEPRAZOLE [Concomitant]
     Route: 042
     Dates: start: 20071002, end: 20071008
  29. YECTAFER [Concomitant]
     Dosage: REPORTED AS YECTAFER COMPLEX. TTD: FOLIC ACID 1MG, FERRUM 100MG, VITAMIN B12 100MCG.
     Dates: start: 20070925, end: 20070930
  30. LEVOFLOXACIN [Concomitant]
     Indication: INFECTION PROPHYLAXIS
     Route: 048
     Dates: start: 20071002, end: 20071002
  31. LEVOFLOXACIN [Concomitant]
     Route: 048
     Dates: start: 20071003, end: 20071003
  32. LEVOFLOXACIN [Concomitant]
     Route: 048
     Dates: start: 20071004, end: 20071006
  33. AMLODIPINE [Concomitant]
     Indication: LUPUS NEPHRITIS
     Route: 048
     Dates: start: 20071002, end: 20071003
  34. AMLODIPINE [Concomitant]
     Route: 048
     Dates: start: 20071004, end: 20071023
  35. AMLODIPINE [Concomitant]
     Route: 048
     Dates: start: 20080118
  36. BENADRYL [Concomitant]
     Indication: LUPUS NEPHRITIS
     Dosage: DOSE: 1 VIAL.
     Dates: start: 20071002, end: 20071002
  37. BUDESONIDE [Concomitant]
     Indication: LUPUS NEPHRITIS
     Dosage: DOSE: 20GT
     Route: 025
     Dates: start: 20071002, end: 20071002
  38. BENCIDAMINA [Concomitant]
     Indication: INFECTION PROPHYLAXIS
     Dosage: DRUG: CHLORHYDRATE BENCIDAMINA. ROUTE: GARGLE.
     Dates: start: 20071002, end: 20071008
  39. DELTA TOMANIL B12 [Concomitant]
     Indication: LUPUS NEPHRITIS
     Dosage: DOSE: 1 VIAL.
     Route: 030
     Dates: start: 20071002, end: 20071002
  40. DEXAMETHASONE [Concomitant]
     Indication: LUPUS NEPHRITIS
     Route: 042
     Dates: start: 20071002, end: 20071002
  41. HYDROCORTISONE [Concomitant]
     Indication: LUPUS NEPHRITIS
     Route: 042
     Dates: start: 20071002, end: 20071002
  42. ISORDIL [Concomitant]
     Indication: LUPUS NEPHRITIS
     Route: 060
     Dates: start: 20071002, end: 20071002
  43. PANTOPRAZOLE SODIUM [Concomitant]
     Indication: GASTRITIS
     Route: 048
     Dates: start: 20071002, end: 20071002
  44. ALBUTEROL [Concomitant]
     Indication: LUPUS NEPHRITIS
     Dosage: DOSE: 12 GT
     Route: 025
     Dates: start: 20071002, end: 20071002
  45. ALBUTEROL [Concomitant]
     Dosage: DOSE: 24 GT
     Route: 025
     Dates: start: 20071003, end: 20071003
  46. ALBUTEROL [Concomitant]
     Dosage: DOSE: 24 GT
     Route: 025
     Dates: start: 20071006, end: 20071006
  47. ALBUTEROL [Concomitant]
     Dosage: DOSE: 12 GT
     Route: 025
     Dates: start: 20071007, end: 20071007
  48. EPOGEN [Concomitant]
     Route: 042
     Dates: start: 20071003
  49. NIFEDIPINE [Concomitant]
     Indication: LUPUS NEPHRITIS
     Dosage: DOSE: 2 GT
     Route: 060
     Dates: start: 20071004, end: 20071004
  50. DOMPERIDONE [Concomitant]
     Route: 042
     Dates: start: 20071005, end: 20071007
  51. NYSTATIN [Concomitant]
     Indication: INFECTION PROPHYLAXIS
     Dosage: FORM: GARGLE.
     Dates: start: 20071005, end: 20071007
  52. MEPREDNISONE [Concomitant]
     Dates: start: 20071008
  53. METOCLOPRAMIDE [Concomitant]
     Route: 042
     Dates: start: 20071008, end: 20071008

REACTIONS (2)
  - LUPUS NEPHRITIS [None]
  - SYSTEMIC LUPUS ERYTHEMATOSUS [None]
